FAERS Safety Report 11895931 (Version 1)
Quarter: 2016Q1

REPORT INFORMATION
  Report Type: Spontaneous
  Country: US (occurrence: US)
  Receive Date: 20160107
  Receipt Date: 20160107
  Transmission Date: 20160526
  Serious: No
  Sender: FDA-Public Use
  Company Number: US-009507513-1512USA014610

PATIENT
  Sex: Male
  Weight: 82.5 kg

DRUGS (2)
  1. ZETIA [Suspect]
     Active Substance: EZETIMIBE
     Dosage: UNKNOWN
     Route: 048
     Dates: end: 2010
  2. MEVACOR [Suspect]
     Active Substance: LOVASTATIN
     Dosage: UNKNOWN
     Route: 048
     Dates: end: 2010

REACTIONS (1)
  - Adverse event [Unknown]
